FAERS Safety Report 11672537 (Version 3)
Quarter: 2016Q1

REPORT INFORMATION
  Report Type: Report from Study
  Country: JP (occurrence: JP)
  Receive Date: 20151028
  Receipt Date: 20160316
  Transmission Date: 20160525
  Serious: Yes (Death, Hospitalization)
  Sender: FDA-Public Use
  Company Number: PHHY2015JP129372

PATIENT
  Sex: Male
  Weight: 43 kg

DRUGS (2)
  1. PAZOPANIB [Suspect]
     Active Substance: PAZOPANIB
     Indication: PERIPHERAL NERVE SHEATH TUMOUR MALIGNANT
     Dosage: 800 MG, QD
     Route: 048
     Dates: start: 20130515, end: 20130526
  2. PAZOPANIB [Suspect]
     Active Substance: PAZOPANIB
     Dosage: 600 MG, QD
     Route: 048
     Dates: start: 20130527, end: 20130609

REACTIONS (7)
  - Platelet count decreased [Recovered/Resolved]
  - Malaise [Recovering/Resolving]
  - Diarrhoea [Recovered/Resolved]
  - Dyspnoea [Fatal]
  - Metastases to pleura [Fatal]
  - Decreased appetite [Recovering/Resolving]
  - Metastases to lung [Fatal]

NARRATIVE: CASE EVENT DATE: 20130518
